FAERS Safety Report 4605070-3 (Version None)
Quarter: 2005Q2

REPORT INFORMATION
  Report Type: 
  Country: None (occurrence: None)
  Receive Date: 20050217
  Receipt Date: 20041207
  Transmission Date: 20051028
  Serious: No
  Sender: FDA-Public Use
  Company Number: S04-USA-07728-01

PATIENT
  Age: 81 Year
  Sex: Male

DRUGS (4)
  1. NAMENDA [Suspect]
     Indication: DEMENTIA
     Dosage: 5 MG QD PO
     Route: 048
     Dates: start: 20041204
  2. ATENOLOL [Concomitant]
  3. RANITIDINE [Concomitant]
  4. LEVOXYL [Concomitant]

REACTIONS (1)
  - ERYTHEMA [None]
